FAERS Safety Report 24562108 (Version 3)
Quarter: 2025Q1

REPORT INFORMATION
  Report Type: Spontaneous
  Country: NO (occurrence: NO)
  Receive Date: 20241029
  Receipt Date: 20250106
  Transmission Date: 20250409
  Serious: Yes (Other)
  Sender: CSL BEHRING
  Company Number: NO-BEH-2024182283

PATIENT
  Age: 39 Year
  Sex: Female

DRUGS (1)
  1. PRIVIGEN [Suspect]
     Active Substance: HUMAN IMMUNOGLOBULIN G
     Indication: Immune thrombocytopenia
     Route: 042
     Dates: start: 20240904, end: 20240904

REACTIONS (3)
  - Misleading laboratory test result [Recovered/Resolved]
  - Hepatitis B core antibody positive [Recovered/Resolved]
  - Hepatitis B surface antibody positive [Recovered/Resolved]

NARRATIVE: CASE EVENT DATE: 20240909
